FAERS Safety Report 7053757-8 (Version None)
Quarter: 2010Q4

REPORT INFORMATION
  Report Type: 
  Country: None (occurrence: None)
  Receive Date: 20101020
  Receipt Date: 20101012
  Transmission Date: 20110411
  Serious: Yes (Death, Hospitalization)
  Sender: FDA-Public Use
  Company Number: A0887078A

PATIENT
  Age: 66 Year
  Sex: Male

DRUGS (1)
  1. AVANDIA [Suspect]
     Indication: DIABETES MELLITUS
     Dosage: 2MG TWICE PER DAY
     Route: 048
     Dates: start: 19990101, end: 20070101

REACTIONS (6)
  - CARDIAC FAILURE CONGESTIVE [None]
  - CARDIO-RESPIRATORY ARREST [None]
  - CEREBROVASCULAR ACCIDENT [None]
  - HYPOXIC-ISCHAEMIC ENCEPHALOPATHY [None]
  - MYOCARDIAL INFARCTION [None]
  - VENTRICULAR ARRHYTHMIA [None]
